FAERS Safety Report 10551094 (Version 1)
Quarter: 2014Q4

REPORT INFORMATION
  Report Type: Spontaneous
  Country: ES (occurrence: None)
  Receive Date: 20141027
  Receipt Date: 20141027
  Transmission Date: 20150529
  Serious: Yes (Hospitalization, Other)
  Sender: FDA-Public Use
  Company Number: ES-ZYDUS-005294

PATIENT
  Age: 47 Year
  Sex: Female

DRUGS (3)
  1. AMOXICILLIN (AMOXICILLIN) [Suspect]
     Active Substance: AMOXICILLIN
     Indication: HELICOBACTER INFECTION
  2. OMEPRAZOLE (OMEPRAZOLE) [Suspect]
     Active Substance: OMEPRAZOLE
     Indication: HELICOBACTER INFECTION
  3. CLARITHROMYCIN (CLARITHROMYCIN) [Suspect]
     Active Substance: CLARITHROMYCIN
     Indication: HELICOBACTER INFECTION
     Route: 048

REACTIONS (4)
  - Abnormal behaviour [None]
  - Psychotic disorder [None]
  - Bipolar I disorder [None]
  - Mania [None]
